FAERS Safety Report 11331597 (Version 2)
Quarter: 2015Q3

REPORT INFORMATION
  Report Type: Spontaneous
  Country: JP (occurrence: JP)
  Receive Date: 20150803
  Receipt Date: 20150917
  Transmission Date: 20151125
  Serious: Yes (Hospitalization)
  Sender: FDA-Public Use
  Company Number: JP-MYLANLABS-2015M1024872

PATIENT

DRUGS (2)
  1. PREDNISOLONE. [Suspect]
     Active Substance: PREDNISOLONE
     Indication: SCLERODERMA
     Dosage: 10 MG, QD
     Route: 048
     Dates: start: 201407
  2. VASODILATORS [Suspect]
     Active Substance: UNSPECIFIED INGREDIENT
     Indication: SCLERODERMA
     Dosage: UNK
     Route: 065
     Dates: start: 2011

REACTIONS (2)
  - Thrombotic microangiopathy [Recovering/Resolving]
  - Scleroderma renal crisis [Recovering/Resolving]

NARRATIVE: CASE EVENT DATE: 2014
